FAERS Safety Report 5550503-1 (Version None)
Quarter: 2007Q4

REPORT INFORMATION
  Report Type: 
  Country: None (occurrence: None)
  Receive Date: 20071210
  Receipt Date: 20071126
  Transmission Date: 20080405
  Serious: Yes (Death, Hospitalization, Other)
  Sender: FDA-Public Use
  Company Number: 43250

PATIENT
  Age: 11 Year
  Sex: Male

DRUGS (2)
  1. ADRIAMYCIN PFS [Suspect]
     Indication: EWING'S SARCOMA
  2. ETOPOSIDE [Suspect]

REACTIONS (3)
  - EPISTAXIS [None]
  - GASTROINTESTINAL HAEMORRHAGE [None]
  - HAEMATURIA [None]
